FAERS Safety Report 8216740-2 (Version None)
Quarter: 2012Q1

REPORT INFORMATION
  Report Type: 
  Country: None (occurrence: None)
  Receive Date: 20120316
  Receipt Date: 20120306
  Transmission Date: 20120608
  Serious: Yes (Other)
  Sender: FDA-Public Use
  Company Number: US-ROCHE-770319

PATIENT
  Age: 25 Year
  Sex: Female

DRUGS (4)
  1. COPEGUS [Suspect]
     Indication: PRODUCT USED FOR UNKNOWN INDICATION
     Route: 065
     Dates: start: 20090716, end: 20100101
  2. PRILOSEC [Concomitant]
     Indication: GASTROOESOPHAGEAL REFLUX DISEASE
  3. PEGINTERFERON ALFA-2A [Suspect]
     Indication: PRODUCT USED FOR UNKNOWN INDICATION
     Route: 065
     Dates: start: 20090716, end: 20100101
  4. ZYRTEC [Concomitant]
     Indication: SEASONAL ALLERGY

REACTIONS (3)
  - UMBILICAL CORD VASCULAR DISORDER [None]
  - HAEMOGLOBIN DECREASED [None]
  - JAUNDICE [None]
